FAERS Safety Report 22079882 (Version 1)
Quarter: 2023Q1

REPORT INFORMATION
  Report Type: Spontaneous
  Country: ZA (occurrence: None)
  Receive Date: 20230309
  Receipt Date: 20230309
  Transmission Date: 20230417
  Serious: No
  Sender: FDA-Public Use
  Company Number: None

PATIENT
  Age: 49 Year
  Sex: Male

DRUGS (1)
  1. CELESTONE [Suspect]
     Active Substance: BETAMETHASONE
     Indication: Inflammation
     Dates: start: 20230308, end: 20230308

REACTIONS (2)
  - Hiccups [None]
  - Insomnia [None]

NARRATIVE: CASE EVENT DATE: 20230308
